FAERS Safety Report 6044775-7 (Version None)
Quarter: 2009Q1

REPORT INFORMATION
  Report Type: 
  Country: None (occurrence: None)
  Receive Date: 20090120
  Receipt Date: 20090115
  Transmission Date: 20090719
  Serious: Yes (Hospitalization)
  Sender: FDA-Public Use
  Company Number: NL-B.I. PHARMACEUTICALS,INC./RIDGEFIELD-2009-DE-00320GD

PATIENT

DRUGS (3)
  1. DIPYRIDAMOLE [Suspect]
     Dosage: RANGED FROM 150 MG TO 450 MG
     Route: 048
  2. ASPIRIN [Suspect]
     Dosage: RANGED FROM 30 MG TO 100 MG FOR MOST PATIENTS
     Route: 048
  3. COUMADIN [Suspect]

REACTIONS (3)
  - HAEMORRHAGE [None]
  - HAEMORRHAGE INTRACRANIAL [None]
  - UPPER GASTROINTESTINAL HAEMORRHAGE [None]
